FAERS Safety Report 24846671 (Version 1)
Quarter: 2025Q1

REPORT INFORMATION
  Report Type: Spontaneous
  Country: US (occurrence: US)
  Receive Date: 20250115
  Receipt Date: 20250115
  Transmission Date: 20250409
  Serious: No
  Sender: FERRING
  Company Number: US-FERRINGPH-2024FE06428

PATIENT
  Age: 61 Year
  Sex: Male

DRUGS (1)
  1. CLENPIQ [Suspect]
     Active Substance: ANHYDROUS CITRIC ACID\MAGNESIUM OXIDE\SODIUM PICOSULFATE
     Indication: Bowel preparation
     Route: 048
     Dates: start: 20241107, end: 20241108

REACTIONS (4)
  - Chills [Unknown]
  - Vomiting [Unknown]
  - Diarrhoea [Unknown]
  - Therapeutic product effect variable [Unknown]

NARRATIVE: CASE EVENT DATE: 20241107
